FAERS Safety Report 5511661-8 (Version None)
Quarter: 2007Q4

REPORT INFORMATION
  Report Type: 
  Country: None (occurrence: None)
  Receive Date: 20071109
  Receipt Date: 20071026
  Transmission Date: 20080405
  Serious: Yes (Life-Threatening, Hospitalization)
  Sender: FDA-Public Use
  Company Number: GB-RANBAXY-2007RR-07160

PATIENT

DRUGS (1)
  1. FRUSEMIDE [Suspect]
     Indication: OEDEMA
     Dosage: 120 MG, QD
     Route: 048

REACTIONS (12)
  - BLOOD ELECTROLYTES DECREASED [None]
  - ELECTROCARDIOGRAM NORMAL [None]
  - ENCEPHALOPATHY [None]
  - HYPERCHOLESTEROLAEMIA [None]
  - HYPOALBUMINAEMIA [None]
  - HYPOCHLORAEMIA [None]
  - HYPOKALAEMIA [None]
  - HYPOTENSION [None]
  - METABOLIC ALKALOSIS [None]
  - NEPHROTIC SYNDROME [None]
  - PROTEINURIA [None]
  - RESPIRATORY FAILURE [None]
